FAERS Safety Report 8360179-6 (Version None)
Quarter: 2012Q2

REPORT INFORMATION
  Report Type: 
  Country: None (occurrence: None)
  Receive Date: 20120515
  Receipt Date: 20120503
  Transmission Date: 20120825
  Serious: Yes (Other)
  Sender: FDA-Public Use
  Company Number: KR-JNJFOC-20120412853

PATIENT
  Age: 3 Decade
  Sex: Female

DRUGS (8)
  1. INVEGA [Suspect]
     Route: 048
     Dates: start: 20100201
  2. LITHIUM CARBONATE [Concomitant]
     Route: 048
  3. INVEGA [Suspect]
     Indication: SCHIZOPHRENIA
     Route: 048
     Dates: start: 20100301
  4. INVEGA [Suspect]
     Route: 048
     Dates: start: 20120401
  5. INVEGA [Suspect]
     Route: 048
     Dates: start: 20091201
  6. RISPERDAL CONSTA [Suspect]
     Indication: SCHIZOPHRENIA
     Route: 030
     Dates: start: 20091101
  7. RISPERDAL [Suspect]
     Indication: SCHIZOPHRENIA
     Route: 048
  8. INVEGA [Suspect]
     Route: 048
     Dates: start: 20100401

REACTIONS (1)
  - DIABETES MELLITUS [None]
